FAERS Safety Report 9845109 (Version 1)
Quarter: 2014Q1

REPORT INFORMATION
  Report Type: Spontaneous
  Country: US (occurrence: None)
  Receive Date: 20140123
  Receipt Date: 20140123
  Transmission Date: 20141002
  Serious: Yes (Hospitalization)
  Sender: FDA-Public Use
  Company Number: None

PATIENT
  Age: 34 Year
  Sex: Male
  Weight: 77.11 kg

DRUGS (1)
  1. CREST PRO HEALTH CLINICAL MOUTHWASH [Suspect]
     Indication: BREATH ODOUR
     Dates: start: 20140116, end: 20140118

REACTIONS (5)
  - Oral discomfort [None]
  - Oral mucosal exfoliation [None]
  - Gingival swelling [None]
  - Gingival bleeding [None]
  - Gingival discolouration [None]
